FAERS Safety Report 14354451 (Version 1)
Quarter: 2018Q1

REPORT INFORMATION
  Report Type: Spontaneous
  Country: RO (occurrence: RO)
  Receive Date: 20180105
  Receipt Date: 20180105
  Transmission Date: 20180509
  Serious: Yes (Other)
  Sender: FDA-Public Use
  Company Number: RO-ALEMBIC PHARMACUETICALS LIMITED-2017SCAL001050

PATIENT

DRUGS (1)
  1. HYDROCHLOROTHIAZIDE. [Suspect]
     Active Substance: HYDROCHLOROTHIAZIDE
     Indication: NEPHROGENIC DIABETES INSIPIDUS
     Dosage: 2MG/KG/BODY

REACTIONS (2)
  - Alkalosis [Unknown]
  - Hypokalaemia [Unknown]
